FAERS Safety Report 12154384 (Version 1)
Quarter: 2016Q1

REPORT INFORMATION
  Report Type: Spontaneous
  Country: US (occurrence: US)
  Receive Date: 20160307
  Receipt Date: 20160307
  Transmission Date: 20160526
  Serious: No
  Sender: FDA-Public Use
  Company Number: US-PFIZER INC-2016078688

PATIENT
  Age: 33 Year
  Sex: Male

DRUGS (1)
  1. CHANTIX [Suspect]
     Active Substance: VARENICLINE TARTRATE
     Indication: SMOKING CESSATION THERAPY
     Dosage: 1MG, 2X/DAY (MORNING AND EVENING)
     Route: 048
     Dates: start: 20150908, end: 201509

REACTIONS (1)
  - Memory impairment [Unknown]
